FAERS Safety Report 16766980 (Version 1)
Quarter: 2019Q3

REPORT INFORMATION
  Report Type: Spontaneous
  Country: US (occurrence: US)
  Receive Date: 20190715
  Receipt Date: 20190715
  Transmission Date: 20191005
  Serious: Yes (Other)
  Sender: FDA-Public Use
  Company Number: None

PATIENT
  Age: 57 Year
  Sex: Female
  Weight: 90.72 kg

DRUGS (1)
  1. CHOLESTYRAMINE. [Suspect]
     Active Substance: CHOLESTYRAMINE
     Indication: ILL-DEFINED DISORDER
     Route: 048
     Dates: start: 20190422, end: 20190525

REACTIONS (2)
  - Urine odour abnormal [None]
  - Abnormal faeces [None]

NARRATIVE: CASE EVENT DATE: 20190424
